FAERS Safety Report 12949759 (Version 2)
Quarter: 2016Q4

REPORT INFORMATION
  Report Type: Report from Study
  Country: CA (occurrence: CA)
  Receive Date: 20161116
  Receipt Date: 20161122
  Transmission Date: 20170207
  Serious: Yes (Other)
  Sender: FDA-Public Use
  Company Number: PHHY2016CA156821

PATIENT
  Sex: Female

DRUGS (1)
  1. GILENYA [Suspect]
     Active Substance: FINGOLIMOD HYDROCHLORIDE
     Indication: MULTIPLE SCLEROSIS
     Dosage: 0.5 MG, QD
     Route: 048
     Dates: start: 20161014

REACTIONS (6)
  - Phlebitis [Recovering/Resolving]
  - Pain [Recovering/Resolving]
  - Muscle spasms [Unknown]
  - Peripheral swelling [Unknown]
  - Injury [Unknown]
  - Skin discolouration [Unknown]
